FAERS Safety Report 5192917-8 (Version None)
Quarter: 2006Q4

REPORT INFORMATION
  Report Type: 
  Country: None (occurrence: None)
  Receive Date: 20061228
  Receipt Date: 20060215
  Transmission Date: 20070319
  Serious: No
  Sender: FDA-Public Use
  Company Number: US-GLAXOSMITHKLINE-A0593845A

PATIENT
  Age: 79 Year
  Sex: Male

DRUGS (4)
  1. FLONASE [Suspect]
     Dosage: 2SPR PER DAY
     Route: 045
  2. LIPITOR [Concomitant]
  3. VIAGRA [Concomitant]
  4. DIOVAN [Concomitant]

REACTIONS (2)
  - NASAL CONGESTION [None]
  - THERAPEUTIC RESPONSE DECREASED [None]
